FAERS Safety Report 7618516-3 (Version None)
Quarter: 2011Q3

REPORT INFORMATION
  Report Type: 
  Country: None (occurrence: None)
  Receive Date: 20110718
  Receipt Date: 20091119
  Transmission Date: 20111222
  Serious: Yes (Other)
  Sender: FDA-Public Use
  Company Number: US-BAYER-200939986NA

PATIENT
  Age: 65 Year
  Sex: Female
  Weight: 57 kg

DRUGS (14)
  1. TRASYLOL [Suspect]
     Indication: PRODUCT USED FOR UNKNOWN INDICATION
     Dosage: 100 ML FOLLOWED BY 25 ML/HR
     Route: 042
     Dates: start: 20031009, end: 20031009
  2. CONTRAST MEDIA [Concomitant]
     Indication: CATHETERISATION CARDIAC
     Dosage: UNK
     Dates: start: 20031006
  3. VASOTEC [Concomitant]
     Dosage: 10 MG, QD
  4. SYNTHROID [Concomitant]
     Dosage: 0.125 MG, QD
  5. PRILOSEC [Concomitant]
     Dosage: 20 MG, QD
  6. GENTAMYCIN SULFATE [Concomitant]
     Route: 042
  7. TRASYLOL [Suspect]
     Indication: CORONARY ARTERY BYPASS
  8. CEFAZOLIN [Concomitant]
     Dosage: 1 UNK, UNK
     Route: 042
  9. PROPOFOL [Concomitant]
     Route: 042
  10. EPINEPHRINE [Concomitant]
     Route: 042
  11. GLUCOVANCE [Concomitant]
     Dosage: UNK UNK, BID
  12. AVANDIA [Concomitant]
     Dosage: 4 MG, QD
  13. ELAVIL [Concomitant]
     Dosage: 50 MG, UNK
  14. PAVULON [Concomitant]
     Route: 042

REACTIONS (11)
  - RENAL IMPAIRMENT [None]
  - PAIN [None]
  - FEAR [None]
  - INJURY [None]
  - ANHEDONIA [None]
  - UNEVALUABLE EVENT [None]
  - RENAL FAILURE [None]
  - STRESS [None]
  - ANXIETY [None]
  - RENAL INJURY [None]
  - EMOTIONAL DISTRESS [None]
